FAERS Safety Report 20172315 (Version 1)
Quarter: 2021Q4

REPORT INFORMATION
  Report Type: Spontaneous
  Country: IT (occurrence: IT)
  Receive Date: 20211210
  Receipt Date: 20211210
  Transmission Date: 20220303
  Serious: Yes (Hospitalization)
  Sender: FDA-Public Use
  Company Number: ITA-CUMBERLAND-2021-IT-000001

PATIENT
  Age: 68 Year
  Sex: Male

DRUGS (1)
  1. REDITREX [Suspect]
     Active Substance: METHOTREXATE

REACTIONS (8)
  - Overdose [Recovered/Resolved]
  - Intestinal perforation [Recovered/Resolved]
  - Thrombocytopenia [Recovered/Resolved]
  - Mucosal inflammation [Recovered/Resolved]
  - Diarrhoea haemorrhagic [Recovered/Resolved]
  - Epistaxis [Recovered/Resolved]
  - Oropharyngeal pain [Recovered/Resolved]
  - Asthenia [Recovered/Resolved]
